FAERS Safety Report 4952962-1 (Version None)
Quarter: 2006Q1

REPORT INFORMATION
  Report Type: 
  Country: None (occurrence: None)
  Receive Date: 20060324
  Receipt Date: 20060228
  Transmission Date: 20060701
  Serious: Yes (Death, Hospitalization)
  Sender: FDA-Public Use
  Company Number: AR-BRISTOL-MYERS SQUIBB COMPANY-13299144

PATIENT
  Age: 81 Year
  Sex: Male

DRUGS (4)
  1. CDDP [Suspect]
     Indication: GASTRIC CANCER
     Route: 041
     Dates: start: 20060207, end: 20060207
  2. FLUOROURACIL [Suspect]
     Indication: GASTRIC CANCER
     Route: 041
     Dates: start: 20060207, end: 20060211
  3. BROMAZEPAM [Concomitant]
     Indication: NAUSEA
     Route: 048
     Dates: start: 20050101, end: 20060219
  4. SIMETHICONE [Concomitant]
     Indication: NAUSEA
     Route: 048
     Dates: start: 20050101, end: 20060219

REACTIONS (4)
  - CARDIO-RESPIRATORY ARREST [None]
  - DEHYDRATION [None]
  - MUCOSAL INFLAMMATION [None]
  - RENAL FAILURE ACUTE [None]
